FAERS Safety Report 7545680-7 (Version None)
Quarter: 2011Q2

REPORT INFORMATION
  Report Type: 
  Country: None (occurrence: None)
  Receive Date: 20110614
  Receipt Date: 20110610
  Transmission Date: 20111010
  Serious: Yes (Hospitalization)
  Sender: FDA-Public Use
  Company Number: US-BRISTOL-MYERS SQUIBB COMPANY-15768922

PATIENT
  Age: 64 Year
  Sex: Female
  Weight: 35 kg

DRUGS (13)
  1. DEXAMETHASONE [Concomitant]
     Dosage: 4MG, 3 TABS NIGHT BEFORE CHEMO
     Route: 048
  2. CETUXIMAB [Suspect]
     Indication: NON-SMALL CELL LUNG CANCER
     Dosage: LAST DOSE ON 10FEB2011. HELD ON 24-FEB-2011
     Route: 042
     Dates: start: 20110120
  3. CARBOPLATIN [Suspect]
     Indication: NON-SMALL CELL LUNG CANCER
     Dosage: LAST DOSE ON 10FEB2011. HELD ON 24-FEB-2011
     Route: 042
     Dates: start: 20110120
  4. MULTI-VITAMIN [Concomitant]
     Indication: MEDICAL DIET
     Route: 065
  5. RITALIN [Concomitant]
     Route: 048
  6. K-DUR [Concomitant]
     Route: 048
  7. MACROBID [Concomitant]
     Route: 048
  8. POTASSIUM CHLORIDE [Concomitant]
     Route: 065
  9. VITAMIN B [Concomitant]
     Route: 065
  10. NEULASTA [Concomitant]
     Indication: NEUTROPHIL COUNT DECREASED
     Route: 065
     Dates: start: 20110211, end: 20110211
  11. COMPAZINE [Concomitant]
     Indication: NAUSEA
     Route: 048
  12. RITALIN [Concomitant]
     Route: 048
  13. PACLITAXEL [Suspect]
     Indication: NON-SMALL CELL LUNG CANCER
     Dosage: LAST DOSE ON 10FEB2011. HELD ON 24-FEB-2011
     Route: 042
     Dates: start: 20110120

REACTIONS (1)
  - THROMBOCYTOPENIA [None]
